FAERS Safety Report 5311480-1 (Version None)
Quarter: 2007Q2

REPORT INFORMATION
  Report Type: 
  Country: None (occurrence: None)
  Receive Date: 20070430
  Receipt Date: 20070419
  Transmission Date: 20071010
  Serious: Yes (Death, Hospitalization)
  Sender: FDA-Public Use
  Company Number: BE-AVENTIS-200713049GDDC

PATIENT
  Age: 61 Year
  Sex: Male
  Weight: 83 kg

DRUGS (9)
  1. TAVANIC [Suspect]
     Indication: DEVICE RELATED INFECTION
     Route: 042
     Dates: start: 20070327, end: 20070330
  2. FLAGYL [Suspect]
     Indication: PSEUDOMEMBRANOUS COLITIS
     Route: 048
     Dates: start: 20070330, end: 20070402
  3. FLAGYL [Suspect]
     Route: 042
     Dates: start: 20070402, end: 20070403
  4. VANCOMYCIN [Concomitant]
     Indication: DEVICE RELATED INFECTION
     Route: 042
     Dates: start: 20070327, end: 20070330
  5. VANCOMYCIN [Concomitant]
     Route: 048
     Dates: start: 20070330, end: 20070403
  6. VANCOMYCIN [Concomitant]
     Dates: start: 20070402, end: 20070403
  7. VANCOMYCIN [Concomitant]
     Indication: PSEUDOMEMBRANOUS COLITIS
     Route: 042
     Dates: start: 20070327, end: 20070330
  8. VANCOMYCIN [Concomitant]
     Route: 048
     Dates: start: 20070330, end: 20070403
  9. VANCOMYCIN [Concomitant]
     Dates: start: 20070402, end: 20070403

REACTIONS (9)
  - CARDIAC ARREST [None]
  - CLOSTRIDIUM DIFFICILE COLITIS [None]
  - DIALYSIS [None]
  - GASTROINTESTINAL HAEMORRHAGE [None]
  - MULTI-ORGAN FAILURE [None]
  - NO THERAPEUTIC RESPONSE [None]
  - PROCEDURAL COMPLICATION [None]
  - PSEUDOMEMBRANOUS COLITIS [None]
  - RENAL FAILURE [None]
